FAERS Safety Report 8007917-X (Version None)
Quarter: 2011Q4

REPORT INFORMATION
  Report Type: 
  Country: None (occurrence: None)
  Receive Date: 20111227
  Receipt Date: 20111214
  Transmission Date: 20120403
  Serious: Yes (Death)
  Sender: FDA-Public Use
  Company Number: JP-SANOFI-AVENTIS-200910011JP

PATIENT
  Age: 74 Year
  Sex: Female

DRUGS (3)
  1. ALLEGRA [Suspect]
     Indication: ECZEMA
     Dosage: DOSE UNIT: 30 MG
     Route: 048
     Dates: start: 20081219, end: 20081225
  2. ALLEGRA [Suspect]
     Dosage: DOSE UNIT: 30 MG
     Route: 048
     Dates: start: 20081219, end: 20081225
  3. ADALAT [Concomitant]
     Indication: HYPERTENSION
     Route: 048
     Dates: start: 20021002

REACTIONS (5)
  - ASPARTATE AMINOTRANSFERASE INCREASED [None]
  - HEPATITIS FULMINANT [None]
  - JAUNDICE [None]
  - ALANINE AMINOTRANSFERASE INCREASED [None]
  - MALAISE [None]
